FAERS Safety Report 25270956 (Version 1)
Quarter: 2025Q2

REPORT INFORMATION
  Report Type: Spontaneous
  Country: US (occurrence: US)
  Receive Date: 20250506
  Receipt Date: 20250506
  Transmission Date: 20250717
  Serious: Yes (Other)
  Sender: CHEPLAPHARM
  Company Number: None

PATIENT
  Age: 54 Year
  Sex: Male

DRUGS (9)
  1. OLANZAPINE [Suspect]
     Active Substance: OLANZAPINE
  2. HYDROMORPHONE [Suspect]
     Active Substance: HYDROMORPHONE
     Indication: Symptomatic treatment
  3. HYDROMORPHONE [Suspect]
     Active Substance: HYDROMORPHONE
     Indication: Symptomatic treatment
  4. HYDROMORPHONE [Suspect]
     Active Substance: HYDROMORPHONE
     Indication: Symptomatic treatment
  5. GABAPENTIN [Suspect]
     Active Substance: GABAPENTIN
     Indication: Symptomatic treatment
  6. METHADONE [Suspect]
     Active Substance: METHADONE HYDROCHLORIDE
     Indication: Symptomatic treatment
  7. METHADONE [Suspect]
     Active Substance: METHADONE HYDROCHLORIDE
     Indication: Symptomatic treatment
  8. DULOXETINE [Suspect]
     Active Substance: DULOXETINE
     Indication: Symptomatic treatment
  9. ONDANSETRON [Suspect]
     Active Substance: ONDANSETRON
     Indication: Symptomatic treatment

REACTIONS (1)
  - Serotonin syndrome [Recovered/Resolved]
